FAERS Safety Report 6549643-X (Version None)
Quarter: 2010Q1

REPORT INFORMATION
  Report Type: 
  Country: None (occurrence: None)
  Receive Date: 20100119
  Receipt Date: 20100112
  Transmission Date: 20100710
  Serious: Yes (Hospitalization, Other)
  Sender: FDA-Public Use
  Company Number: 2009SP035360

PATIENT
  Age: 66 Year
  Sex: Female
  Weight: 96.6 kg

DRUGS (25)
  1. MIRTAZAPINE [Suspect]
     Indication: DEPRESSION
     Dosage: SEE IMAGE; PO
     Route: 048
     Dates: end: 20090415
  2. MIRTAZAPINE [Suspect]
     Indication: DEPRESSION
     Dosage: SEE IMAGE; PO
     Route: 048
     Dates: start: 20090416, end: 20090430
  3. MIRTAZAPINE [Suspect]
     Indication: DEPRESSION
     Dosage: SEE IMAGE; PO
     Route: 048
     Dates: start: 20090501, end: 20090615
  4. MIRTAZAPINE [Suspect]
     Indication: DEPRESSION
     Dosage: SEE IMAGE; PO
     Route: 048
     Dates: start: 20090616, end: 20090617
  5. MIRTAZAPINE [Suspect]
     Indication: DEPRESSION
     Dosage: SEE IMAGE; PO
     Route: 048
     Dates: start: 20090617, end: 20090617
  6. ERGENYL (VALPROATE SODIUM) [Suspect]
     Indication: BIPOLAR DISORDER
     Dosage: SEE IMAGE; ORAL
     Route: 048
     Dates: start: 20020101, end: 20060101
  7. ERGENYL (VALPROATE SODIUM) [Suspect]
     Indication: BIPOLAR DISORDER
     Dosage: SEE IMAGE; ORAL
     Route: 048
     Dates: start: 20060101, end: 20090617
  8. ERGENYL (VALPROATE SODIUM) [Suspect]
     Indication: BIPOLAR DISORDER
     Dosage: SEE IMAGE; ORAL
     Route: 048
     Dates: start: 20090618, end: 20090618
  9. ERGENYL (VALPROATE SODIUM) [Suspect]
     Indication: BIPOLAR DISORDER
     Dosage: SEE IMAGE; ORAL
     Route: 048
     Dates: start: 20090619, end: 20090619
  10. ERGENYL (VALPROATE SODIUM) [Suspect]
     Indication: BIPOLAR DISORDER
     Dosage: SEE IMAGE; ORAL
     Route: 048
     Dates: start: 20090620, end: 20090620
  11. ZOLOFT [Suspect]
     Indication: DRUG USE FOR UNKNOWN INDICATION
     Dosage: SEE IMAGE; PO
     Route: 048
     Dates: start: 20090326, end: 20090407
  12. ZOLOFT [Suspect]
     Indication: DRUG USE FOR UNKNOWN INDICATION
     Dosage: SEE IMAGE; PO
     Route: 048
     Dates: start: 20090408, end: 20090423
  13. ZOLOFT [Suspect]
     Indication: DRUG USE FOR UNKNOWN INDICATION
     Dosage: SEE IMAGE; PO
     Route: 048
     Dates: start: 20090424, end: 20090426
  14. ZOLOFT [Suspect]
     Indication: DRUG USE FOR UNKNOWN INDICATION
     Dosage: SEE IMAGE; PO
     Route: 048
     Dates: start: 20090427, end: 20090511
  15. ZOLOFT [Suspect]
     Indication: DRUG USE FOR UNKNOWN INDICATION
     Dosage: SEE IMAGE; PO
     Route: 048
     Dates: start: 20090512, end: 20090612
  16. ZOLOFT [Suspect]
     Indication: DRUG USE FOR UNKNOWN INDICATION
     Dosage: SEE IMAGE; PO
     Route: 048
     Dates: start: 20090613
  17. METOPROLOL (METOPROLOL) [Suspect]
     Indication: HYPERTENSION
     Dosage: 47.5 MG, QD, PO
     Route: 048
  18. AMLODIPINE [Suspect]
     Indication: HYPERTENSION
     Dosage: 10 MG, QD, PO
     Route: 048
  19. MARCUMAR [Concomitant]
  20. L-THYROXIN [Concomitant]
  21. LASIX [Concomitant]
  22. ASPIRIN [Concomitant]
  23. BENALAPRIL [Concomitant]
  24. ZOP [Concomitant]
  25. LAMICTAL [Concomitant]

REACTIONS (9)
  - ALANINE AMINOTRANSFERASE INCREASED [None]
  - ASPARTATE AMINOTRANSFERASE INCREASED [None]
  - BILIARY DILATATION [None]
  - BLOOD ALKALINE PHOSPHATASE INCREASED [None]
  - CHOLELITHIASIS [None]
  - CONDITION AGGRAVATED [None]
  - GAMMA-GLUTAMYLTRANSFERASE INCREASED [None]
  - PSYCHOTIC DISORDER [None]
  - SPLENOMEGALY [None]
